FAERS Safety Report 10142828 (Version 1)
Quarter: 2014Q2

REPORT INFORMATION
  Report Type: Spontaneous
  Country: US (occurrence: None)
  Receive Date: 20140428
  Receipt Date: 20140428
  Transmission Date: 20141212
  Serious: Yes (Other)
  Sender: FDA-Public Use
  Company Number: None

PATIENT
  Age: 55 Year
  Sex: Female
  Weight: 55.34 kg

DRUGS (1)
  1. XELODA [Suspect]
     Indication: BREAST CANCER
     Dosage: 16JUN2014 TO 7APR2014
     Route: 048

REACTIONS (7)
  - Skin fissures [None]
  - Skin haemorrhage [None]
  - Pain [None]
  - Gait disturbance [None]
  - Platelet count decreased [None]
  - Epistaxis [None]
  - Nail operation [None]
